FAERS Safety Report 13414248 (Version 1)
Quarter: 2017Q2

REPORT INFORMATION
  Report Type: Spontaneous
  Country: US (occurrence: US)
  Receive Date: 20170406
  Receipt Date: 20170406
  Transmission Date: 20170830
  Serious: No
  Sender: FDA-Public Use
  Company Number: US-BRISTOL-MYERS SQUIBB COMPANY-BMS-2017-027816

PATIENT
  Sex: Male

DRUGS (1)
  1. OPDIVO [Suspect]
     Active Substance: NIVOLUMAB
     Indication: NEUROENDOCRINE CARCINOMA OF THE SKIN
     Dosage: UNKNOWN
     Route: 042

REACTIONS (10)
  - Weight increased [Unknown]
  - Amnesia [Unknown]
  - Fatigue [Unknown]
  - Joint swelling [Unknown]
  - Product use in unapproved indication [Unknown]
  - Dizziness [Unknown]
  - Ocular icterus [Unknown]
  - Vertigo [Unknown]
  - Confusional state [Unknown]
  - Diplopia [Recovered/Resolved]
